FAERS Safety Report 9768228 (Version 2)
Quarter: 2013Q4

REPORT INFORMATION
  Report Type: Spontaneous
  Country: US (occurrence: US)
  Receive Date: 20131217
  Receipt Date: 20131217
  Transmission Date: 20140711
  Serious: Yes (Other)
  Sender: FDA-Public Use
  Company Number: US-BRISTOL-MYERS SQUIBB COMPANY-19653922

PATIENT
  Age: 37 Year
  Sex: Female
  Weight: 114.38 kg

DRUGS (4)
  1. ABILIFY [Suspect]
     Route: 048
     Dates: start: 201309
  2. ABILIFY MAINTENA INJECTION [Suspect]
     Indication: SCHIZOPHRENIA
     Dosage: 2ND DOSE:03OCT13
     Route: 030
     Dates: start: 20130906
  3. VISTARIL [Concomitant]
  4. WELLBUTRIN [Concomitant]
     Dosage: WELLBUTRIN XR

REACTIONS (2)
  - Bile duct stone [Recovering/Resolving]
  - Diarrhoea [Recovering/Resolving]
